FAERS Safety Report 10561460 (Version 1)
Quarter: 2014Q4

REPORT INFORMATION
  Report Type: Spontaneous
  Country: US (occurrence: US)
  Receive Date: 20141103
  Receipt Date: 20141103
  Transmission Date: 20150529
  Serious: No
  Sender: FDA-Public Use
  Company Number: US-ENDO PHARMACEUTICALS INC.-APIR20140014

PATIENT
  Sex: Female

DRUGS (3)
  1. ALPRAZOLAM IR TABLETS 1MG [Suspect]
     Active Substance: ALPRAZOLAM
     Indication: ANXIETY
     Dosage: 1MG
     Route: 048
     Dates: end: 20140824
  2. ALPRAZOLAM IR TABLETS 1MG [Suspect]
     Active Substance: ALPRAZOLAM
     Dosage: 0.5MG
     Route: 048
     Dates: start: 20140825
  3. ALPRAZOLAM. [Concomitant]
     Active Substance: ALPRAZOLAM
     Indication: PRODUCT USED FOR UNKNOWN INDICATION
     Dosage: UNK
     Route: 065

REACTIONS (2)
  - Drug ineffective [Unknown]
  - Feeling abnormal [Unknown]

NARRATIVE: CASE EVENT DATE: 201408
